FAERS Safety Report 6573152-5 (Version None)
Quarter: 2010Q1

REPORT INFORMATION
  Report Type: 
  Country: None (occurrence: None)
  Receive Date: 20100208
  Receipt Date: 20100128
  Transmission Date: 20100710
  Serious: Yes (Hospitalization)
  Sender: FDA-Public Use
  Company Number: US-ASTRAZENECA-2010SE03915

PATIENT
  Age: 54 Year
  Sex: Male

DRUGS (5)
  1. SEROQUEL XR [Suspect]
     Route: 048
  2. SYMBICORT [Concomitant]
     Route: 055
  3. LEXAPRO [Concomitant]
  4. TRILEPTAL [Concomitant]
  5. SINGULAIR [Concomitant]

REACTIONS (3)
  - RESPIRATORY ARREST [None]
  - TREMOR [None]
  - UNRESPONSIVE TO STIMULI [None]
